FAERS Safety Report 15639114 (Version 2)
Quarter: 2019Q1

REPORT INFORMATION
  Report Type: Spontaneous
  Country: FR (occurrence: FR)
  Receive Date: 20181120
  Receipt Date: 20190111
  Transmission Date: 20190417
  Serious: Yes (Hospitalization)
  Sender: FDA-Public Use
  Company Number: FR-AMGEN-FRASP2018162598

PATIENT
  Age: 49 Year
  Sex: Male

DRUGS (11)
  1. PERMIXON [Concomitant]
     Active Substance: HERBALS\SAW PALMETTO
     Dosage: 2 DF, QD (2-0-0)
  2. FOLINIC ACID [Concomitant]
     Active Substance: LEUCOVORIN
     Indication: ADENOCARCINOMA OF COLON
     Dosage: UNK
     Dates: start: 20181015
  3. 5 FU [Concomitant]
     Active Substance: FLUOROURACIL
     Indication: ADENOCARCINOMA OF COLON
     Dosage: UNK
     Dates: start: 20181015
  4. 5 FU [Concomitant]
     Active Substance: FLUOROURACIL
     Indication: METASTASES TO LIVER
  5. FOLINIC ACID [Concomitant]
     Active Substance: LEUCOVORIN
     Indication: METASTASES TO LIVER
  6. VALSARTAN. [Concomitant]
     Active Substance: VALSARTAN
     Dosage: 80 MG, QD (0-0-1)
  7. EUPANTOL [Concomitant]
     Active Substance: PANTOPRAZOLE SODIUM
     Dosage: 40 MG, QD (0-0-1)
  8. VECTIBIX [Suspect]
     Active Substance: PANITUMUMAB
     Indication: ADENOCARCINOMA OF COLON
     Dosage: 550 MG, CYCLICAL
     Route: 042
     Dates: start: 20181015, end: 20181031
  9. OXALIPLATINE [Suspect]
     Active Substance: OXALIPLATIN
     Indication: ADENOCARCINOMA OF COLON
     Dosage: 170 MG, CYCLICAL
     Route: 042
     Dates: start: 20181015, end: 20181031
  10. OXALIPLATINE [Suspect]
     Active Substance: OXALIPLATIN
     Indication: METASTASES TO LIVER
  11. XATRAL [Concomitant]
     Active Substance: ALFUZOSIN
     Dosage: 10 MG, QD (0-0-1)

REACTIONS (4)
  - Erythema [Recovered/Resolved]
  - Urinary incontinence [Recovered/Resolved]
  - Hypotension [Recovered/Resolved]
  - Nausea [Recovered/Resolved]

NARRATIVE: CASE EVENT DATE: 20181031
